FAERS Safety Report 4877951-7 (Version None)
Quarter: 2005Q4

REPORT INFORMATION
  Report Type: 
  Country: None (occurrence: None)
  Receive Date: 20051206
  Receipt Date: 20050909
  Transmission Date: 20060501
  Serious: No
  Sender: FDA-Public Use
  Company Number: USA0509107755

PATIENT
  Age: 84 Year
  Sex: Female

DRUGS (3)
  1. CYMBALTA [Suspect]
     Indication: BURNING SENSATION
     Dates: start: 20050101
  2. SYNTHROID [Concomitant]
  3. DETROL [Concomitant]

REACTIONS (4)
  - ABNORMAL BEHAVIOUR [None]
  - FATIGUE [None]
  - MALAISE [None]
  - OEDEMA [None]
